FAERS Safety Report 15448287 (Version 1)
Quarter: 2018Q3

REPORT INFORMATION
  Report Type: Spontaneous
  Country: US (occurrence: US)
  Receive Date: 20180926
  Receipt Date: 20180926
  Transmission Date: 20181010
  Serious: Yes (Hospitalization)
  Sender: FDA-Public Use
  Company Number: None

PATIENT
  Age: 69 Year
  Sex: Male

DRUGS (20)
  1. ADVAIR DISK 500/50 [Concomitant]
  2. FLONASE [Concomitant]
     Active Substance: FLUTICASONE PROPIONATE
  3. PREDNISONE 5MG [Concomitant]
     Active Substance: PREDNISONE
  4. VITAMIN D3 5000UNIT [Concomitant]
  5. ZYRTEC [Concomitant]
     Active Substance: CETIRIZINE HYDROCHLORIDE
  6. ACYCLOVIR 400MG [Concomitant]
  7. LASIX 20MG [Concomitant]
  8. OMEPRAZOLE 20MG [Concomitant]
     Active Substance: OMEPRAZOLE
  9. RAMIPRIL 5MG [Concomitant]
     Active Substance: RAMIPRIL
  10. VICODEN 7.5?300MG [Concomitant]
  11. CARVEDILOL 6.25MG [Concomitant]
     Active Substance: CARVEDILOL
  12. ELIQUIS [Concomitant]
     Active Substance: APIXABAN
  13. MAGNESIUM 250MG [Concomitant]
  14. SINGULAR 10MG [Concomitant]
  15. NINLARO [Suspect]
     Active Substance: IXAZOMIB CITRATE
     Indication: PLASMA CELL MYELOMA
     Dosage: ?          OTHER FREQUENCY:3 TIMES A MONTH;?
     Route: 048
     Dates: start: 20180607
  16. CALCIUM 600MG [Concomitant]
  17. LEVOTHYROXIN 125MCG [Concomitant]
  18. LIPITOR [Concomitant]
     Active Substance: ATORVASTATIN CALCIUM
  19. CENTRUM [Concomitant]
     Active Substance: VITAMINS
  20. INSPRA 25MG [Concomitant]

REACTIONS (1)
  - Therapy cessation [None]

NARRATIVE: CASE EVENT DATE: 20180925
